FAERS Safety Report 13473226 (Version 2)
Quarter: 2017Q3

REPORT INFORMATION
  Report Type: Spontaneous
  Country: GB (occurrence: GB)
  Receive Date: 20170424
  Receipt Date: 20170714
  Transmission Date: 20171127
  Serious: Yes (Other)
  Sender: FDA-Public Use
  Company Number: GB-009507513-1704GBR007133

PATIENT
  Age: 44 Year
  Sex: Male
  Weight: 67.3 kg

DRUGS (5)
  1. VITAMIN E [Concomitant]
     Active Substance: .ALPHA.-TOCOPHEROL
  2. ZINC (UNSPECIFIED) [Concomitant]
     Active Substance: ZINC
  3. REBETOL [Suspect]
     Active Substance: RIBAVIRIN
     Indication: CHRONIC HEPATITIS C
     Dosage: 200 MG, QD
     Route: 048
     Dates: start: 20170225, end: 20170328
  4. EPCLUSA [Suspect]
     Active Substance: SOFOSBUVIR\VELPATASVIR
     Indication: CHRONIC HEPATITIS C
     Dosage: 1 DF, QD
     Route: 048
     Dates: start: 20170225
  5. IBUPROFEN SODIUM. [Concomitant]
     Active Substance: IBUPROFEN SODIUM

REACTIONS (4)
  - Abdominal pain [Recovering/Resolving]
  - Amylase increased [Recovering/Resolving]
  - Pancreatitis [Recovering/Resolving]
  - Blood bilirubin increased [Recovering/Resolving]

NARRATIVE: CASE EVENT DATE: 20170315
